FAERS Safety Report 23562514 (Version 1)
Quarter: 2024Q1

REPORT INFORMATION
  Report Type: Spontaneous
  Country: US (occurrence: US)
  Receive Date: 20240226
  Receipt Date: 20240226
  Transmission Date: 20240410
  Serious: No
  Sender: FDA-Public Use
  Company Number: US-SA-SAC20240219000268

PATIENT
  Sex: Female

DRUGS (13)
  1. DUPIXENT [Suspect]
     Active Substance: DUPILUMAB
     Indication: Dermatitis atopic
     Dosage: 300 MG, QOW
     Route: 058
     Dates: start: 20220713
  2. OXYCODONE AND ACETAMINOPHEN [Concomitant]
     Active Substance: ACETAMINOPHEN\OXYCODONE HYDROCHLORIDE
  3. LOSARTAN POTASSIUM [Concomitant]
     Active Substance: LOSARTAN POTASSIUM
  4. PREMPRO [Concomitant]
     Active Substance: ESTROGENS, CONJUGATED\MEDROXYPROGESTERONE ACETATE
  5. VITAMIN A [Concomitant]
     Active Substance: VITAMIN A
  6. COLLAGEN [Concomitant]
     Active Substance: COLLAGEN
  7. ZINC [Concomitant]
     Active Substance: PYRITHIONE ZINC\ZINC\ZINC CHLORIDE
  8. LYSINE [Concomitant]
     Active Substance: LYSINE
  9. MAGNESIUM [Concomitant]
     Active Substance: MAGNESIUM
  10. FAMOTIDINE [Concomitant]
     Active Substance: FAMOTIDINE
  11. GLUCOSAMINE + CHONDROITIN + MSM [Concomitant]
  12. JWH-018 [Concomitant]
     Active Substance: JWH-018
  13. B12 ACTIVE [Concomitant]

REACTIONS (3)
  - Sleep disorder due to a general medical condition [Unknown]
  - Tendon rupture [Unknown]
  - Arthralgia [Unknown]
